FAERS Safety Report 4848767-2 (Version None)
Quarter: 2005Q4

REPORT INFORMATION
  Report Type: 
  Country: None (occurrence: None)
  Receive Date: 20051206
  Receipt Date: 20051122
  Transmission Date: 20060501
  Serious: Yes (Hospitalization)
  Sender: FDA-Public Use
  Company Number: FR200511002327

PATIENT
  Age: 41 Year
  Sex: Male
  Weight: 52 kg

DRUGS (6)
  1. CIALIS [Suspect]
     Dosage: 10 MG, MONTHLY (1/M), ORAL
     Route: 048
  2. EPIVIR [Concomitant]
  3. REYATAZ [Concomitant]
  4. VIDEX [Concomitant]
  5. NORVIR [Concomitant]
  6. FLUCONAZOLE [Concomitant]

REACTIONS (11)
  - ASTHENIA [None]
  - CANDIDIASIS [None]
  - CHOLESTASIS [None]
  - DYSPHAGIA [None]
  - HEPATOCELLULAR DAMAGE [None]
  - HERPES ZOSTER [None]
  - JAUNDICE [None]
  - OESOPHAGITIS [None]
  - PROTHROMBIN TIME RATIO DECREASED [None]
  - ULCER [None]
  - VOMITING [None]
